FAERS Safety Report 9348345 (Version 1)
Quarter: 2013Q2

REPORT INFORMATION
  Report Type: Spontaneous
  Country: FR (occurrence: FR)
  Receive Date: 20130614
  Receipt Date: 20130614
  Transmission Date: 20140414
  Serious: Yes (Life-Threatening, Hospitalization)
  Sender: FDA-Public Use
  Company Number: FR-PFIZER INC-2013172063

PATIENT
  Age: 59 Year
  Sex: Male

DRUGS (7)
  1. TAZOCILLINE [Suspect]
     Indication: DEVICE RELATED INFECTION
     Dosage: 4 G, 3X/DAY
     Route: 042
     Dates: start: 20130429, end: 20130521
  2. EUPANTOL [Suspect]
     Dosage: 40 MG, 1X/DAY
     Route: 048
     Dates: start: 201304, end: 20130521
  3. TAHOR [Concomitant]
  4. KARDEGIC [Concomitant]
  5. PLAVIX [Concomitant]
  6. PREVISCAN [Concomitant]
  7. BISOPROLOL [Concomitant]

REACTIONS (1)
  - Agranulocytosis [Recovered/Resolved]
